FAERS Safety Report 10205491 (Version 1)
Quarter: 2014Q2

REPORT INFORMATION
  Report Type: Spontaneous
  Country: FR (occurrence: FR)
  Receive Date: 20140529
  Receipt Date: 20140529
  Transmission Date: 20141212
  Serious: Yes (Other)
  Sender: FDA-Public Use
  Company Number: FR-ACTAVIS-2014-11297

PATIENT
  Age: 28 Year
  Sex: Male

DRUGS (4)
  1. VALPROIC ACID (UNKNOWN) [Suspect]
     Indication: GENERALISED TONIC-CLONIC SEIZURE
     Dosage: 0.05 MG/KG/H
     Route: 042
  2. VALPROIC ACID (UNKNOWN) [Suspect]
     Dosage: 750 MG, BID
     Route: 048
  3. MIDAZOLAM (UNKNOWN) [Suspect]
     Indication: SEDATIVE THERAPY
     Dosage: UNK
     Route: 042
  4. SUFENTANIL [Concomitant]
     Indication: SEDATIVE THERAPY
     Dosage: UNK
     Route: 042

REACTIONS (2)
  - Hyperammonaemic encephalopathy [Recovered/Resolved]
  - Electroencephalogram abnormal [Recovered/Resolved]
